FAERS Safety Report 7963598-2 (Version None)
Quarter: 2011Q4

REPORT INFORMATION
  Report Type: 
  Country: None (occurrence: None)
  Receive Date: 20111208
  Receipt Date: 20111027
  Transmission Date: 20120403
  Serious: No
  Sender: FDA-Public Use
  Company Number: US-BAYER-2011-105404

PATIENT
  Age: 63 Year
  Sex: Female

DRUGS (1)
  1. ALEVE (CAPLET) [Suspect]
     Indication: BACK PAIN
     Dosage: UNK UNK, TID
     Route: 048
     Dates: start: 20111025

REACTIONS (2)
  - PAIN [None]
  - BACK PAIN [None]
